FAERS Safety Report 13194090 (Version 1)
Quarter: 2017Q1

REPORT INFORMATION
  Report Type: Report from Study
  Country: US (occurrence: US)
  Receive Date: 20170207
  Receipt Date: 20170207
  Transmission Date: 20170428
  Serious: Yes (Hospitalization)
  Sender: FDA-Public Use
  Company Number: US-B. BRAUN MEDICAL INC.-1062847

PATIENT
  Age: 45 Year
  Sex: Female

DRUGS (9)
  1. BETAMETHASONE. [Suspect]
     Active Substance: BETAMETHASONE
     Route: 008
  2. NORMAL SALINE [Concomitant]
     Active Substance: SODIUM CHLORIDE
     Route: 040
  3. CEFTRIAXONE. [Concomitant]
     Active Substance: CEFTRIAXONE
  4. METHYLPREDNISOLONE. [Suspect]
     Active Substance: METHYLPREDNISOLONE
     Route: 008
  5. LIDOCAINE. [Concomitant]
     Active Substance: LIDOCAINE
     Route: 058
  6. LIDOCAINE. [Suspect]
     Active Substance: LIDOCAINE
     Indication: BACK PAIN
     Route: 058
  7. ODANSETRON [Concomitant]
     Active Substance: ONDANSETRON
     Route: 042
  8. MORPHINE SULFATE. [Concomitant]
     Active Substance: MORPHINE SULFATE
     Route: 042
  9. VANCOMYCIN HCL [Concomitant]
     Active Substance: VANCOMYCIN HYDROCHLORIDE

REACTIONS (5)
  - Vomiting [None]
  - Photophobia [None]
  - Meningitis chemical [None]
  - Nausea [None]
  - Headache [None]
